FAERS Safety Report 6041695-9 (Version None)
Quarter: 2009Q1

REPORT INFORMATION
  Report Type: 
  Country: None (occurrence: None)
  Receive Date: 20090116
  Receipt Date: 20080609
  Transmission Date: 20090719
  Serious: Yes (Hospitalization, Other)
  Sender: FDA-Public Use
  Company Number: US-BRISTOL-MYERS SQUIBB COMPANY-14177190

PATIENT
  Age: 15 Year
  Sex: Male

DRUGS (3)
  1. ABILIFY [Suspect]
     Indication: OBSESSIVE-COMPULSIVE DISORDER
     Dosage: WAS RESTARTED.
     Route: 048
     Dates: start: 20080213
  2. ABILIFY [Suspect]
     Indication: PARANOIA
     Dosage: WAS RESTARTED.
     Route: 048
     Dates: start: 20080213
  3. PROZAC [Suspect]

REACTIONS (2)
  - FLAT AFFECT [None]
  - MUSCULOSKELETAL STIFFNESS [None]
